FAERS Safety Report 6750782-9 (Version None)
Quarter: 2010Q2

REPORT INFORMATION
  Report Type: 
  Country: None (occurrence: None)
  Receive Date: 20100602
  Receipt Date: 20100517
  Transmission Date: 20101027
  Serious: Yes (Hospitalization)
  Sender: FDA-Public Use
  Company Number: JP-SHIRE-SPV1-2010-00993

PATIENT

DRUGS (8)
  1. LANTHANUM CARBONATE [Suspect]
     Indication: HYPERPHOSPHATAEMIA
     Dosage: 750 MG, UNK
     Dates: start: 20090427
  2. ROCALCITOL [Concomitant]
     Dosage: .25 UG, UNK
     Route: 048
     Dates: start: 20091109
  3. RENAGEL [Concomitant]
     Indication: HYPOPHOSPHATAEMIA
     Dosage: 2.25 G, UNK
     Route: 048
  4. ALFAROL [Concomitant]
     Dosage: .5 UG, UNK
     Route: 048
     Dates: start: 20100101, end: 20100314
  5. GEFANIL [Concomitant]
     Dosage: 300 MG, UNK
     Route: 048
  6. GASTER D [Concomitant]
     Dosage: 20 MG, UNK
     Route: 048
  7. DIOVAN [Concomitant]
     Dosage: 160 MG, UNK
     Route: 048
  8. ADALAT [Concomitant]
     Dosage: 80 MG, UNK
     Route: 048

REACTIONS (1)
  - FEMORAL NECK FRACTURE [None]
